FAERS Safety Report 8247420-5 (Version None)
Quarter: 2012Q1

REPORT INFORMATION
  Report Type: 
  Country: None (occurrence: None)
  Receive Date: 20120330
  Receipt Date: 20120319
  Transmission Date: 20120608
  Serious: Yes (Hospitalization)
  Sender: FDA-Public Use
  Company Number: US-SANOFI-AVENTIS-2012SA019227

PATIENT
  Sex: Male

DRUGS (2)
  1. LANTUS [Suspect]
     Dosage: DOSE:34 UNIT(S)
     Route: 058
  2. SOLOSTAR [Suspect]

REACTIONS (9)
  - CRANIOCEREBRAL INJURY [None]
  - ROAD TRAFFIC ACCIDENT [None]
  - CONCUSSION [None]
  - AMNESIA [None]
  - SPINAL COMPRESSION FRACTURE [None]
  - LYMPHOEDEMA [None]
  - CLAVICLE FRACTURE [None]
  - UPPER LIMB FRACTURE [None]
  - NERVE INJURY [None]
